FAERS Safety Report 5670873-3 (Version None)
Quarter: 2008Q2

REPORT INFORMATION
  Report Type: 
  Country: None (occurrence: None)
  Receive Date: 20080305
  Receipt Date: 20071212
  Transmission Date: 20081010
  Serious: Yes (Other)
  Sender: FDA-Public Use
  Company Number: BDI-010713

PATIENT

DRUGS (1)
  1. ISOVUE-300 [Suspect]
     Indication: CATHETER THROMBOSIS
     Dosage: 20ML ONCE

REACTIONS (1)
  - HYPERSENSITIVITY [None]
